FAERS Safety Report 6522220-2 (Version None)
Quarter: 2009Q4

REPORT INFORMATION
  Report Type: 
  Country: None (occurrence: None)
  Receive Date: 20091230
  Receipt Date: 20091220
  Transmission Date: 20100525
  Serious: Yes (Other)
  Sender: FDA-Public Use
  Company Number: US-JNJFOC-20091206957

PATIENT
  Sex: Male

DRUGS (4)
  1. TYLENOL (CAPLET) [Suspect]
     Indication: PAIN
     Dosage: 3900 MG TO 5200 MG
     Route: 048
  2. TYLENOL (CAPLET) [Suspect]
     Indication: MYALGIA
     Dosage: 3900 MG TO 5200 MG
     Route: 048
  3. ALEVE (CAPLET) [Suspect]
     Indication: PAIN
  4. ALEVE (CAPLET) [Suspect]
     Indication: MYALGIA

REACTIONS (1)
  - HAEMORRHAGE [None]
